FAERS Safety Report 4759703-1 (Version None)
Quarter: 2005Q3

REPORT INFORMATION
  Report Type: 
  Country: None (occurrence: None)
  Receive Date: 20050831
  Receipt Date: 20050811
  Transmission Date: 20060218
  Serious: Yes (Hospitalization)
  Sender: FDA-Public Use
  Company Number: USA0508105235

PATIENT
  Age: 62 Year
  Sex: Female

DRUGS (9)
  1. FORTEO [Suspect]
     Indication: OSTEOPOROSIS
     Dates: start: 20050729
  2. SEREVENT [Concomitant]
  3. LIPITOR [Concomitant]
  4. ESTRADIOL [Concomitant]
  5. PROMETRIUM [Concomitant]
  6. MULTIVITAMIN [Concomitant]
  7. PREDNISONE [Concomitant]
  8. BENICAR [Concomitant]
  9. FLUTICASONE PROPIONATE W/SALMETEROL XINAFOATE) [Concomitant]

REACTIONS (6)
  - ASTHMA [None]
  - DEVICE MALFUNCTION [None]
  - FATIGUE [None]
  - FEELING ABNORMAL [None]
  - HEART RATE INCREASED [None]
  - PHARMACEUTICAL PRODUCT COMPLAINT [None]
